FAERS Safety Report 8355982 (Version 2)
Quarter: 2012Q4

REPORT INFORMATION
  Report Type: 
  Country: US (occurrence: US)
  Receive Date: 20120126
  Receipt Date: 20121226
  Transmission Date: 20130627
  Serious: Yes (Hospitalization)
  Sender: FDA-Public Use
  Company Number: US-ACTELION-A-US2012-59810

PATIENT
  Age: 49 Year
  Sex: Male

DRUGS (4)
  1. TRACLEER [Suspect]
     Indication: PULMONARY ARTERIAL HYPERTENSION
     Dosage: UNK
     Route: 048
     Dates: start: 20110418
  2. COUMADIN [Concomitant]
  3. ADCIRCA [Concomitant]
  4. REMODULIN [Concomitant]

REACTIONS (2)
  - Volvulus [Recovered/Resolved]
  - Abdominal pain [Recovered/Resolved]
